FAERS Safety Report 5326322-8 (Version None)
Quarter: 2007Q2

REPORT INFORMATION
  Report Type: 
  Country: None (occurrence: None)
  Receive Date: 20070514
  Receipt Date: 20070514
  Transmission Date: 20071010
  Serious: No
  Sender: FDA-Public Use
  Company Number: None

PATIENT
  Age: 63 Year
  Sex: Female
  Weight: 65.7716 kg

DRUGS (1)
  1. FOSAMAX [Suspect]
     Indication: OSTEOPOROSIS
     Dosage: 1 TABLE DAY
     Dates: start: 19980217, end: 20030101

REACTIONS (3)
  - DYSPEPSIA [None]
  - DYSPHAGIA [None]
  - ODYNOPHAGIA [None]
